FAERS Safety Report 21526254 (Version 1)
Quarter: 2022Q4

REPORT INFORMATION
  Report Type: Spontaneous
  Country: RS (occurrence: RS)
  Receive Date: 20221031
  Receipt Date: 20221031
  Transmission Date: 20230113
  Serious: Yes (Other)
  Sender: FDA-Public Use
  Company Number: RS-JNJFOC-20221047277

PATIENT
  Age: 48 Year
  Sex: Male

DRUGS (4)
  1. SPRAVATO [Suspect]
     Active Substance: ESKETAMINE
     Indication: Depression
     Dates: start: 20221006, end: 20221006
  2. SPRAVATO [Suspect]
     Active Substance: ESKETAMINE
     Dosage: SECOND DOSE
     Dates: start: 20221010, end: 20221010
  3. SPRAVATO [Suspect]
     Active Substance: ESKETAMINE
     Dosage: THIRD DOSE
     Dates: start: 20221013, end: 20221013
  4. SERTRALINE [Concomitant]
     Active Substance: SERTRALINE HYDROCHLORIDE
     Dates: start: 20221005

REACTIONS (2)
  - Hallucinations, mixed [Recovered/Resolved]
  - Adverse drug reaction [Unknown]

NARRATIVE: CASE EVENT DATE: 20221006
